FAERS Safety Report 4508675-3 (Version None)
Quarter: 2004Q4

REPORT INFORMATION
  Report Type: 
  Country: None (occurrence: None)
  Receive Date: 20041123
  Receipt Date: 20040527
  Transmission Date: 20050328
  Serious: No
  Sender: FDA-Public Use
  Company Number: US-GLAXOSMITHKLINE-A0512395A

PATIENT
  Age: 74 Year
  Sex: Female

DRUGS (4)
  1. WELLBUTRIN SR [Suspect]
     Indication: DEPRESSION
     Route: 048
     Dates: start: 20030101, end: 20030101
  2. WELLBUTRIN [Suspect]
     Indication: DEPRESSION
     Route: 048
  3. VALIUM [Concomitant]
  4. REMERON [Concomitant]

REACTIONS (1)
  - ANXIETY [None]
